FAERS Safety Report 5889651-5 (Version None)
Quarter: 2008Q3

REPORT INFORMATION
  Report Type: 
  Country: None (occurrence: None)
  Receive Date: 20080919
  Receipt Date: 20080910
  Transmission Date: 20090109
  Serious: Yes (Hospitalization)
  Sender: FDA-Public Use
  Company Number: US-AMGEN-US307080

PATIENT
  Sex: Female

DRUGS (4)
  1. ENBREL [Suspect]
     Indication: RHEUMATOID ARTHRITIS
     Route: 058
     Dates: start: 20030124, end: 20030601
  2. METHOTREXATE [Concomitant]
     Route: 065
     Dates: start: 20020501
  3. PREDNISONE [Concomitant]
     Route: 065
     Dates: start: 19940101
  4. DISALCID [Concomitant]
     Route: 065
     Dates: start: 19910101

REACTIONS (2)
  - FLANK PAIN [None]
  - URINE COLOUR ABNORMAL [None]
